FAERS Safety Report 23708549 (Version 1)
Quarter: 2024Q2

REPORT INFORMATION
  Report Type: Spontaneous
  Country: US (occurrence: None)
  Receive Date: 20240403
  Receipt Date: 20240403
  Transmission Date: 20240716
  Serious: Yes (Hospitalization, Disabling)
  Sender: FDA-Public Use
  Company Number: None

PATIENT
  Age: 42 Year
  Sex: Female
  Weight: 90.72 kg

DRUGS (6)
  1. UNSPECIFIED INGREDIENT [Suspect]
     Active Substance: UNSPECIFIED INGREDIENT
     Dates: start: 20180104, end: 20180401
  2. HALDOL [Suspect]
     Active Substance: HALOPERIDOL
  3. QUETIAPINE [Concomitant]
     Active Substance: QUETIAPINE
  4. TRILEPTAL [Concomitant]
     Active Substance: OXCARBAZEPINE
  5. ATENOLOL [Concomitant]
     Active Substance: ATENOLOL
  6. ZOLOFT [Concomitant]
     Active Substance: SERTRALINE HYDROCHLORIDE

REACTIONS (9)
  - Documented hypersensitivity to administered product [None]
  - Job dissatisfaction [None]
  - Disturbance in attention [None]
  - Brain fog [None]
  - Fatigue [None]
  - Memory impairment [None]
  - Anxiety [None]
  - Paranoia [None]
  - Legal problem [None]

NARRATIVE: CASE EVENT DATE: 20180104
